FAERS Safety Report 8046167-8 (Version None)
Quarter: 2012Q1

REPORT INFORMATION
  Report Type: 
  Country: None (occurrence: None)
  Receive Date: 20120113
  Receipt Date: 20120106
  Transmission Date: 20120608
  Serious: Yes (Other)
  Sender: FDA-Public Use
  Company Number: US-B.I. PHARMACEUTICALS,INC./RIDGEFIELD-2012-BP-00492PF

PATIENT
  Sex: Male

DRUGS (3)
  1. NORVASC [Concomitant]
  2. PROTONIX [Concomitant]
  3. SPIRIVA [Suspect]

REACTIONS (2)
  - OESOPHAGEAL CARCINOMA [None]
  - CHRONIC OBSTRUCTIVE PULMONARY DISEASE [None]
